FAERS Safety Report 23313968 (Version 1)
Quarter: 2023Q4

REPORT INFORMATION
  Report Type: Report from Study
  Country: CA (occurrence: CA)
  Receive Date: 20231219
  Receipt Date: 20231219
  Transmission Date: 20240110
  Serious: Yes (Other)
  Sender: FDA-Public Use
  Company Number: CA-002147023-NVSC2023CA265412

PATIENT
  Age: 56 Year
  Sex: Female

DRUGS (3)
  1. LETROZOLE [Suspect]
     Active Substance: LETROZOLE
     Indication: Product used for unknown indication
     Dosage: 1 DOSAGE FORM, LETROZOLE PLUS PALBOCICLIB (2.5MG PLUS 125MG)
     Route: 065
     Dates: start: 202202, end: 202309
  2. PAMIDRONATE [Suspect]
     Active Substance: PAMIDRONATE DISODIUM
     Indication: Product used for unknown indication
     Dosage: 90 MG, QMO
     Route: 065
     Dates: start: 202203, end: 202311
  3. PALBOCICLIB [Suspect]
     Active Substance: PALBOCICLIB
     Indication: Product used for unknown indication
     Dosage: 1 DOSAGE FORM (LETROZOLE PLUS PALBOCICLIB (2.5MG PLUS 125MG)
     Route: 065

REACTIONS (3)
  - Osteonecrosis [Unknown]
  - Disease progression [Unknown]
  - Treatment failure [Unknown]
